FAERS Safety Report 21074208 (Version 17)
Quarter: 2025Q4

REPORT INFORMATION
  Report Type: Spontaneous
  Country: CA (occurrence: CA)
  Receive Date: 20220713
  Receipt Date: 20251110
  Transmission Date: 20260117
  Serious: Yes (Other)
  Sender: CELLTRION
  Company Number: CA-CELLTRION INC.-2021CA019191

PATIENT

DRUGS (19)
  1. INFLECTRA [Suspect]
     Active Substance: INFLIXIMAB-DYYB
     Indication: Crohn^s disease
     Dosage: 390 MG, (SUPPOSED TO RECEIVE 5MG/KG), EVERY 6 WEEKS
     Route: 042
     Dates: start: 20220120
  2. INFLECTRA [Suspect]
     Active Substance: INFLIXIMAB-DYYB
     Dosage: 390 MG, (SUPPOSED TO RECEIVE 5MG/KG), EVERY 6 WEEKS
     Route: 042
     Dates: start: 20220228
  3. INFLECTRA [Suspect]
     Active Substance: INFLIXIMAB-DYYB
     Dosage: 390 MG, (SUPPOSED TO RECEIVE 5MG/KG), EVERY 6 WEEKS
     Route: 042
     Dates: start: 20220525
  4. INFLECTRA [Suspect]
     Active Substance: INFLIXIMAB-DYYB
     Dosage: 5 MG/KG, EVERY 6 WEEKS
     Route: 042
     Dates: start: 20220705
  5. INFLECTRA [Suspect]
     Active Substance: INFLIXIMAB-DYYB
     Dosage: 5 MG/KG, EVERY 6 WEEKS
     Route: 042
     Dates: start: 20220817
  6. INFLECTRA [Suspect]
     Active Substance: INFLIXIMAB-DYYB
     Dosage: 5 MG/KG, EVERY 6 WEEKS
     Route: 042
     Dates: start: 20221109
  7. INFLECTRA [Suspect]
     Active Substance: INFLIXIMAB-DYYB
     Dosage: 5 MG/KG, EVERY 6 WEEKS
     Route: 042
     Dates: start: 20230201
  8. INFLECTRA [Suspect]
     Active Substance: INFLIXIMAB-DYYB
     Dosage: 5 MG/KG, EVERY 6 WEEKS
     Route: 042
     Dates: start: 20230315
  9. INFLECTRA [Suspect]
     Active Substance: INFLIXIMAB-DYYB
     Dosage: 5 MG/KG (390MG), EVERY 6 WEEKS
     Route: 042
     Dates: start: 20230421
  10. INFLECTRA [Suspect]
     Active Substance: INFLIXIMAB-DYYB
     Dosage: 5 MG/KG (390MG), EVERY 6 WEEKS
     Route: 042
     Dates: start: 20230421
  11. INFLECTRA [Suspect]
     Active Substance: INFLIXIMAB-DYYB
     Dosage: 370 MG, EVERY 6 WEEKS
     Route: 042
     Dates: start: 20230608
  12. INFLECTRA [Suspect]
     Active Substance: INFLIXIMAB-DYYB
     Dosage: 5 MG/KG (370 MG), EVERY 6 WEEKS
     Route: 042
     Dates: start: 20230721
  13. INFLECTRA [Suspect]
     Active Substance: INFLIXIMAB-DYYB
     Dosage: 5 MG/KG (370 MG), EVERY 6 WEEKS
     Route: 042
     Dates: start: 20230721
  14. INFLECTRA [Suspect]
     Active Substance: INFLIXIMAB-DYYB
     Dosage: 5 MG/KG (360 MG), EVERY 6 WEEKS (AFTER 5 WEEKS AND 6 DAYS )
     Route: 042
     Dates: start: 20230831, end: 20230831
  15. INFLECTRA [Suspect]
     Active Substance: INFLIXIMAB-DYYB
     Dosage: 5 MG/KG AFTER 9 WEEKS AND 4 DAYS
     Route: 042
     Dates: start: 20231106, end: 20231106
  16. INFLECTRA [Suspect]
     Active Substance: INFLIXIMAB-DYYB
     Dosage: 5 MG/KG (390, MG WEEK 0, REINDUCTION)
     Route: 042
     Dates: start: 20240424
  17. INFLECTRA [Suspect]
     Active Substance: INFLIXIMAB-DYYB
     Dosage: 5 MG/KG, REINDUCTION W 0, 2, 6 WEEKS THEN EVERY 8 WEEKS (AFTER 2 WEEKS AND 5 DAYS)
     Route: 042
     Dates: start: 20240513
  18. INFLECTRA [Suspect]
     Active Substance: INFLIXIMAB-DYYB
     Dosage: 5 MG/KG, REINDUCTION W 0, 2, 6 WEEKS THEN EVERY 8 WEEKS
     Route: 042
     Dates: start: 20240610
  19. INFLECTRA [Suspect]
     Active Substance: INFLIXIMAB-DYYB
     Dosage: 5 MG/KG, REINDUCTION W 0, 2, 6 WEEKS THEN EVERY 8 WEEKS
     Route: 042
     Dates: start: 20250715

REACTIONS (13)
  - Weight fluctuation [Unknown]
  - Pyoderma gangrenosum [Recovered/Resolved]
  - Uveitis [Recovered/Resolved]
  - Blood pressure diastolic increased [Not Recovered/Not Resolved]
  - Anal fissure [Unknown]
  - Condition aggravated [Recovered/Resolved]
  - Arthralgia [Recovered/Resolved]
  - Tendonitis [Not Recovered/Not Resolved]
  - Off label use [Unknown]
  - Off label use [Unknown]
  - Intentional product use issue [Unknown]
  - Inappropriate schedule of product administration [Unknown]
  - Incorrect product administration duration [Unknown]

NARRATIVE: CASE EVENT DATE: 20220120
